FAERS Safety Report 9687947 (Version 1)
Quarter: 2013Q4

REPORT INFORMATION
  Report Type: Spontaneous
  Country: FR (occurrence: FR)
  Receive Date: 20131114
  Receipt Date: 20131114
  Transmission Date: 20140711
  Serious: Yes (Other)
  Sender: FDA-Public Use
  Company Number: PHHY2013FR129135

PATIENT
  Age: 32 Year
  Sex: Female

DRUGS (1)
  1. GILENYA [Suspect]
     Indication: MULTIPLE SCLEROSIS
     Dosage: 0.5 MG, QD
     Route: 048
     Dates: start: 2011, end: 20120901

REACTIONS (5)
  - Abnormal labour [Unknown]
  - Pyrexia [Unknown]
  - Prolonged pregnancy [Unknown]
  - Exposure during pregnancy [Unknown]
  - Normal newborn [Unknown]
